FAERS Safety Report 6854639-4 (Version None)
Quarter: 2010Q3

REPORT INFORMATION
  Report Type: 
  Country: None (occurrence: None)
  Receive Date: 20100717
  Receipt Date: 20080213
  Transmission Date: 20110219
  Serious: Yes (Other)
  Sender: FDA-Public Use
  Company Number: US-PFIZER INC-2007097481

PATIENT
  Sex: Female
  Weight: 107.5 kg

DRUGS (3)
  1. CHANTIX [Suspect]
     Dates: start: 20071112, end: 20071113
  2. ALPRAZOLAM [Concomitant]
  3. TRAZODONE HYDROCHLORIDE [Concomitant]

REACTIONS (3)
  - FEAR [None]
  - LOSS OF CONSCIOUSNESS [None]
  - NAUSEA [None]
